FAERS Safety Report 16614586 (Version 3)
Quarter: 2019Q3

REPORT INFORMATION
  Report Type: Spontaneous
  Country: US (occurrence: US)
  Receive Date: 20190723
  Receipt Date: 20190910
  Transmission Date: 20191004
  Serious: No
  Sender: FDA-Public Use
  Company Number: US-PFIZER INC-2019309080

PATIENT
  Age: 1 Year
  Sex: Male

DRUGS (1)
  1. SILDENAFIL CITRATE. [Suspect]
     Active Substance: SILDENAFIL CITRATE
     Dosage: 6.7 ML, UNK

REACTIONS (4)
  - Hyperhidrosis [Unknown]
  - Product use issue [Unknown]
  - Irritability [Unknown]
  - Off label use [Unknown]
